FAERS Safety Report 25645723 (Version 9)
Quarter: 2025Q4

REPORT INFORMATION
  Report Type: Report from Study
  Country: CA (occurrence: CA)
  Receive Date: 20250805
  Receipt Date: 20251229
  Transmission Date: 20260118
  Serious: Yes (Hospitalization, Other)
  Sender: PFIZER
  Company Number: CA-PFIZER INC-202500107547

PATIENT
  Age: 68 Year
  Sex: Female
  Weight: 65 kg

DRUGS (10)
  1. IXIFI [Suspect]
     Active Substance: INFLIXIMAB-QBTX
     Indication: Crohn^s disease
     Dosage: 400 MG, 400 MG (6.15MG/KG), 0, 2, 6 THEN EVERY 8 WEEKS, HOSPITAL START
     Route: 042
     Dates: start: 202505
  2. IXIFI [Suspect]
     Active Substance: INFLIXIMAB-QBTX
     Dosage: 400 MG, (WKS 0,2,6 THEN Q 8 WKS)
     Route: 042
     Dates: start: 20250521
  3. IXIFI [Suspect]
     Active Substance: INFLIXIMAB-QBTX
     Dosage: 400 MG, WEEK 6 (6.15MG/KG), 0, 2, 6 EVERY 8 WEEKS
     Route: 042
     Dates: start: 20250702
  4. IXIFI [Suspect]
     Active Substance: INFLIXIMAB-QBTX
     Dosage: 400 MG, RESCUE DOSE (1 DF, ONE RESCUE DOSE)
     Route: 042
     Dates: start: 20250730, end: 20250730
  5. IXIFI [Suspect]
     Active Substance: INFLIXIMAB-QBTX
     Dosage: 400 MG, WEEK 6 (6.15MG/KG), 0, 2, 6 THEN EVERY 8 WEEKS
     Route: 042
     Dates: start: 20250827
  6. IXIFI [Suspect]
     Active Substance: INFLIXIMAB-QBTX
     Dosage: 400 MG, WEEK 6 (6.15MG/KG), 0, 2, 6 THEN EVERY 8 WEEKS
     Route: 042
     Dates: start: 20251027
  7. IXIFI [Suspect]
     Active Substance: INFLIXIMAB-QBTX
     Dosage: 400 MG, (WKS 0,2,6 THEN Q 8 WKS)
     Route: 042
     Dates: start: 20251222
  8. ALBUTEROL [Concomitant]
     Active Substance: ALBUTEROL
     Indication: Chronic obstructive pulmonary disease
     Dosage: UNK
  9. UMECLIDINIUM [Concomitant]
     Active Substance: UMECLIDINIUM
     Indication: Chronic obstructive pulmonary disease
     Dosage: UNK
  10. VILANTEROL [Concomitant]
     Active Substance: VILANTEROL
     Indication: Chronic obstructive pulmonary disease
     Dosage: UNK

REACTIONS (13)
  - Influenza [Unknown]
  - Diarrhoea [Recovering/Resolving]
  - Myocardial infarction [Recovered/Resolved]
  - Condition aggravated [Not Recovered/Not Resolved]
  - Melanocytic naevus [Unknown]
  - Drug level decreased [Unknown]
  - Blood albumin decreased [Unknown]
  - Malaise [Unknown]
  - Candida infection [Unknown]
  - Postoperative wound infection [Unknown]
  - Arthralgia [Not Recovered/Not Resolved]
  - Memory impairment [Unknown]
  - Off label use [Unknown]

NARRATIVE: CASE EVENT DATE: 20250101
